FAERS Safety Report 7741871-0 (Version None)
Quarter: 2011Q3

REPORT INFORMATION
  Report Type: 
  Country: None (occurrence: None)
  Receive Date: 20110912
  Receipt Date: 20110829
  Transmission Date: 20111222
  Serious: Yes (Hospitalization)
  Sender: FDA-Public Use
  Company Number: JP-JNJFOC-20110902119

PATIENT
  Age: 89 Year
  Sex: Male

DRUGS (7)
  1. DIART [Concomitant]
     Indication: OEDEMA PERIPHERAL
     Route: 048
  2. ASPIRIN [Concomitant]
     Route: 048
  3. ACETAMINOPHEN [Concomitant]
     Indication: OSTEOARTHRITIS
     Route: 048
  4. BERIZYM [Concomitant]
     Route: 048
  5. TOWARAT [Concomitant]
     Indication: HYPERTENSION
     Route: 048
  6. GALANTAMINE HYDROBROMIDE [Suspect]
     Indication: DEMENTIA ALZHEIMER'S TYPE
     Route: 048
     Dates: start: 20110820, end: 20110821
  7. CEROCRAL [Concomitant]
     Indication: HEAD DISCOMFORT
     Route: 048
     Dates: start: 20101120

REACTIONS (5)
  - ASTHENIA [None]
  - FRACTURE [None]
  - DIZZINESS [None]
  - VOMITING [None]
  - FALL [None]
